FAERS Safety Report 24354032 (Version 1)
Quarter: 2024Q3

REPORT INFORMATION
  Report Type: Spontaneous
  Country: US (occurrence: US)
  Receive Date: 20240923
  Receipt Date: 20240923
  Transmission Date: 20241016
  Serious: No
  Sender: ROCHE
  Company Number: US-ROCHE-10000086305

PATIENT
  Sex: Male

DRUGS (1)
  1. ACTEMRA [Suspect]
     Active Substance: TOCILIZUMAB
     Indication: Product used for unknown indication
     Dosage: 162MG ACT PEN
     Route: 058

REACTIONS (5)
  - Device issue [Unknown]
  - Product quality issue [Unknown]
  - Device defective [Unknown]
  - Accidental underdose [Unknown]
  - No adverse event [Unknown]
